FAERS Safety Report 5226544-0 (Version None)
Quarter: 2007Q1

REPORT INFORMATION
  Report Type: 
  Country: None (occurrence: None)
  Receive Date: 20070201
  Receipt Date: 20070122
  Transmission Date: 20070707
  Serious: Yes (Congenital Anomaly)
  Sender: FDA-Public Use
  Company Number: FR-SANOFI-SYNTHELABO-A02200700257

PATIENT

DRUGS (2)
  1. ZOLPIDEM TARTRATE [Suspect]
     Route: 064
     Dates: start: 20061207, end: 20061220
  2. ZOLPIDEM TARTRATE [Suspect]
     Route: 064
     Dates: start: 20061221, end: 20070104

REACTIONS (2)
  - DRUG EXPOSURE DURING PREGNANCY [None]
  - ULTRASOUND ANTENATAL SCREEN [None]
